FAERS Safety Report 8193021-7 (Version None)
Quarter: 2012Q1

REPORT INFORMATION
  Report Type: 
  Country: None (occurrence: None)
  Receive Date: 20120308
  Receipt Date: 20120227
  Transmission Date: 20120608
  Serious: Yes (Death, Hospitalization)
  Sender: FDA-Public Use
  Company Number: FR-CELGENEUS-056-21880-12012348

PATIENT
  Sex: Male
  Weight: 58 kg

DRUGS (19)
  1. PRIMPERAN TAB [Concomitant]
     Dosage: 3 TABLESPOON
     Route: 065
  2. VENTOLIN [Concomitant]
     Route: 065
  3. PREVISCAN [Concomitant]
     Indication: THROMBOSIS PROPHYLAXIS
     Route: 065
     Dates: start: 20090525
  4. TRUVADA [Suspect]
     Dosage: .5 TABLET
     Route: 048
     Dates: start: 20100429, end: 20120203
  5. RABEPRAZOLE SODIUM [Concomitant]
     Dosage: 40 MILLIGRAM
     Route: 065
  6. ISENTRESS [Concomitant]
     Dosage: 800 UNKNOWN
     Route: 048
     Dates: start: 20100429
  7. CYMBALTA [Concomitant]
     Dosage: 30 MILLIGRAM
     Route: 065
  8. FOLIC ACID [Concomitant]
     Dosage: 25 MILLIGRAM
     Route: 065
  9. OXYCODONE HCL [Concomitant]
     Indication: PAIN
     Dosage: 120 MILLIGRAM
     Route: 065
     Dates: start: 20120113
  10. KAYEXALATE [Concomitant]
     Dosage: .2857 DOSAGE FORMS
     Route: 065
  11. DEXERYL [Concomitant]
     Dosage: .1429 DOSAGE FORMS
     Route: 065
  12. KALETRA [Concomitant]
     Dosage: 4 TABLET
     Route: 048
     Dates: start: 20100429
  13. RAMIPRIL [Concomitant]
     Indication: RENAL FAILURE
     Dosage: 5 MILLIGRAM
     Route: 065
     Dates: start: 20100817, end: 20110119
  14. OXYCONTIN [Concomitant]
     Indication: PAIN
     Dosage: 144 MILLIGRAM
     Route: 065
     Dates: start: 20101006
  15. FERROUS SULFATE TAB [Concomitant]
     Dosage: 160 MILLIGRAM
     Route: 065
  16. POLYETHYLENE GLYCOL [Concomitant]
     Route: 065
  17. REVLIMID [Suspect]
     Indication: KAPOSI'S SARCOMA
     Dosage: 25 MILLIGRAM
     Route: 048
     Dates: start: 20120106, end: 20120119
  18. ZOLPIDEM [Concomitant]
     Indication: INSOMNIA
     Route: 065
     Dates: start: 20091002
  19. LORAZEPAM [Concomitant]
     Dosage: 1 MILLIGRAM
     Route: 065

REACTIONS (8)
  - RENAL FAILURE ACUTE [None]
  - RENAL FAILURE CHRONIC [None]
  - ASTHENIA [None]
  - ANAEMIA [None]
  - CONFUSIONAL STATE [None]
  - NEPHROTIC SYNDROME [None]
  - HYPERKALAEMIA [None]
  - PARAESTHESIA [None]
